FAERS Safety Report 10522971 (Version 1)
Quarter: 2014Q4

REPORT INFORMATION
  Report Type: Spontaneous
  Country: FR (occurrence: None)
  Receive Date: 20141010
  Receipt Date: 20141010
  Transmission Date: 20150528
  Serious: Yes (Other)
  Sender: FDA-Public Use
  Company Number: RAP-0163-2014

PATIENT
  Age: 51 Year
  Sex: Male

DRUGS (2)
  1. PROCYSBI DELAYED-RELEASE [Suspect]
     Active Substance: CYSTEAMINE BITARTRATE
     Indication: HUNTINGTON^S DISEASE
     Dosage: 8 DOSAGE FORMS  (8 DOSAGE FORMS, 1 IN 1 D), ORAL
     Route: 048
     Dates: start: 20121023, end: 20130313
  2. BLINDED THERAPY [Suspect]
     Active Substance: INVESTIGATIONAL PRODUCT
     Indication: HUNTINGTON^S DISEASE
     Dosage: UNK (UNKNOWN, UNKNOWN, ORAL ?
     Route: 048
     Dates: start: 20110524, end: 20121023

REACTIONS (1)
  - Hepatocellular injury [None]

NARRATIVE: CASE EVENT DATE: 20130204
